APPROVED DRUG PRODUCT: METHYLPREDNISOLONE
Active Ingredient: METHYLPREDNISOLONE
Strength: 4MG
Dosage Form/Route: TABLET;ORAL
Application: A206751 | Product #001 | TE Code: AB
Applicant: ZYDUS PHARMACEUTICALS USA INC
Approved: Apr 23, 2018 | RLD: No | RS: No | Type: RX